FAERS Safety Report 4263211-4 (Version None)
Quarter: 2004Q1

REPORT INFORMATION
  Report Type: 
  Country: None (occurrence: None)
  Receive Date: 20040105
  Receipt Date: 20031222
  Transmission Date: 20041129
  Serious: Yes (Life-Threatening, Hospitalization)
  Sender: FDA-Public Use
  Company Number: GB-BRISTOL-MYERS SQUIBB COMPANY-12462768

PATIENT
  Age: 68 Year
  Sex: Male
  Weight: 105 kg

DRUGS (6)
  1. CISPLATIN [Suspect]
     Indication: OESOPHAGEAL CARCINOMA
     Route: 042
     Dates: start: 20030826, end: 20030826
  2. FLUOROURACIL [Suspect]
     Indication: OESOPHAGEAL CARCINOMA
     Route: 042
     Dates: start: 20030826, end: 20030826
  3. EDRONAX [Concomitant]
     Indication: DEPRESSION
     Route: 048
     Dates: start: 20030902
  4. LANSOPRAZOLE [Concomitant]
     Indication: DYSPHAGIA
     Route: 048
     Dates: start: 20030723
  5. DIHYDROCODEINE [Concomitant]
     Indication: PAIN
     Route: 048
  6. DOMPERIDONE [Concomitant]
     Indication: NAUSEA
     Route: 048

REACTIONS (1)
  - ATRIAL FIBRILLATION [None]
